FAERS Safety Report 5493921-2 (Version None)
Quarter: 2007Q4

REPORT INFORMATION
  Report Type: 
  Country: None (occurrence: None)
  Receive Date: 20071023
  Receipt Date: 20071018
  Transmission Date: 20080405
  Serious: Yes (Hospitalization)
  Sender: FDA-Public Use
  Company Number: NL-MERCK-0710NLD00029

PATIENT
  Age: 61 Year
  Sex: Male

DRUGS (7)
  1. ZETIA [Suspect]
     Indication: HYPERCHOLESTEROLAEMIA
     Route: 048
     Dates: start: 20041104, end: 20050324
  2. ISOSORBIDE DINITRATE [Concomitant]
     Route: 065
  3. PHENPROCOUMON [Concomitant]
     Route: 065
  4. METOPROLOL TARTRATE [Concomitant]
     Route: 048
  5. DIPYRIDAMOLE [Concomitant]
     Route: 048
  6. LIPITOR [Suspect]
     Route: 065
     Dates: start: 20010101, end: 20050324
  7. COLESTID [Concomitant]
     Route: 065
     Dates: end: 20041101

REACTIONS (2)
  - FIBROSIS [None]
  - HEPATITIS [None]
